FAERS Safety Report 5014183-6 (Version None)
Quarter: 2006Q2

REPORT INFORMATION
  Report Type: 
  Country: None (occurrence: None)
  Receive Date: 20060414
  Receipt Date: 20060214
  Transmission Date: 20061013
  Serious: No
  Sender: FDA-Public Use
  Company Number: 2006SP000780

PATIENT
  Age: 53 Year
  Sex: Female
  Weight: 66.2252 kg

DRUGS (5)
  1. LUNESTA [Suspect]
     Indication: INSOMNIA
     Dosage: 3 MG;HS;ORAL
     Route: 048
     Dates: start: 20060213
  2. PREVACID [Concomitant]
  3. ATORVASTATIN CALCIUM [Concomitant]
  4. METAMUCIL [Concomitant]
  5. CLONIDINE [Concomitant]

REACTIONS (1)
  - CONSTIPATION [None]
